FAERS Safety Report 11635717 (Version 1)
Quarter: 2015Q4

REPORT INFORMATION
  Report Type: Spontaneous
  Country: US (occurrence: None)
  Receive Date: 20151015
  Receipt Date: 20151015
  Transmission Date: 20160304
  Serious: Yes (Hospitalization)
  Sender: FDA-Public Use
  Company Number: None

PATIENT
  Age: 66 Year
  Sex: Female
  Weight: 67.8 kg

DRUGS (2)
  1. CARBOPLATIN. [Suspect]
     Active Substance: CARBOPLATIN
     Dates: end: 20150728
  2. TAXOL [Suspect]
     Active Substance: PACLITAXEL
     Dates: end: 20150728

REACTIONS (2)
  - Dysphagia [None]
  - Oesophageal stenosis [None]

NARRATIVE: CASE EVENT DATE: 20151012
